FAERS Safety Report 10161249 (Version 1)
Quarter: 2014Q2

REPORT INFORMATION
  Report Type: Spontaneous
  Country: US (occurrence: US)
  Receive Date: 20140508
  Receipt Date: 20140508
  Transmission Date: 20141212
  Serious: No
  Sender: FDA-Public Use
  Company Number: US-009507513-2012SP022885

PATIENT
  Age: 3 Year
  Sex: Male
  Weight: 15.88 kg

DRUGS (4)
  1. CLARITIN ORAL SOLUTION [Suspect]
     Indication: HYPERSENSITIVITY
     Dosage: 5 MG, ONCE
     Route: 048
     Dates: start: 20120327
  2. CLARITIN ORAL SOLUTION [Suspect]
     Indication: MEDICAL OBSERVATION
     Dosage: 5 MG, ONCE
     Route: 048
     Dates: start: 20120328
  3. CLARITIN ORAL SOLUTION [Suspect]
     Dosage: 3.75 MG, QD
     Route: 048
     Dates: start: 201203
  4. VITAMINS (UNSPECIFIED) [Concomitant]
     Indication: PRODUCT USED FOR UNKNOWN INDICATION
     Dosage: UNK UNK, UNKNOWN

REACTIONS (1)
  - Overdose [Recovered/Resolved]
